FAERS Safety Report 20802569 (Version 1)
Quarter: 2022Q2

REPORT INFORMATION
  Report Type: Spontaneous
  Country: US (occurrence: None)
  Receive Date: 20220509
  Receipt Date: 20220509
  Transmission Date: 20220721
  Serious: Yes (Hospitalization)
  Sender: FDA-Public Use
  Company Number: None

PATIENT
  Age: 59 Year
  Sex: Male
  Weight: 97 kg

DRUGS (1)
  1. PIPERACILLIN SODIUM\TAZOBACTAM SODIUM [Suspect]
     Active Substance: PIPERACILLIN SODIUM\TAZOBACTAM SODIUM
     Dates: start: 20220131, end: 20220211

REACTIONS (18)
  - Sensory loss [None]
  - Toe amputation [None]
  - Staphylococcal infection [None]
  - Corynebacterium infection [None]
  - Diarrhoea [None]
  - Lymphadenopathy [None]
  - Post procedural discharge [None]
  - Pyrexia [None]
  - Chills [None]
  - Erythema [None]
  - Pallor [None]
  - Musculoskeletal stiffness [None]
  - Metabolic acidosis [None]
  - Hypovolaemia [None]
  - Hyponatraemia [None]
  - Osteomyelitis [None]
  - Eosinophilia [None]
  - Toxicity to various agents [None]

NARRATIVE: CASE EVENT DATE: 20220216
